FAERS Safety Report 23219429 (Version 4)
Quarter: 2023Q4

REPORT INFORMATION
  Report Type: Report from Study
  Country: US (occurrence: US)
  Receive Date: 20231122
  Receipt Date: 20231220
  Transmission Date: 20240109
  Serious: Yes (Life-Threatening, Hospitalization)
  Sender: FDA-Public Use
  Company Number: US-ALKERMES INC.-ALK-2023-004373

PATIENT
  Age: 36 Year
  Sex: Male

DRUGS (4)
  1. BUPRENORPHINE [Suspect]
     Active Substance: BUPRENORPHINE
     Indication: Drug abuse
     Dosage: UNK MILLIGRAM, DAY1 WEEKS 3 AND 6
     Route: 030
     Dates: start: 20231107
  2. PLACEBO [Suspect]
     Active Substance: UNSPECIFIED INGREDIENT
     Indication: Drug abuse
     Dosage: UNK MILLIGRAM, DAY1 WEEKS 3 AND 6
     Route: 030
     Dates: start: 20231107
  3. VIVITROL [Suspect]
     Active Substance: NALTREXONE
     Indication: Drug abuse
     Dosage: UNK MILLIGRAM, DAY1 WEEKS 3 AND 6
     Route: 030
     Dates: start: 20231107
  4. VIVITROL [Suspect]
     Active Substance: NALTREXONE
     Indication: Drug abuse
     Dosage: UNK MILLIGRAM, DAY1 WEEKS 3 AND 6
     Route: 030
     Dates: start: 20231107

REACTIONS (1)
  - Road traffic accident [Unknown]

NARRATIVE: CASE EVENT DATE: 20231110
